FAERS Safety Report 7637193-9 (Version None)
Quarter: 2011Q3

REPORT INFORMATION
  Report Type: 
  Country: None (occurrence: None)
  Receive Date: 20110726
  Receipt Date: 20110712
  Transmission Date: 20111222
  Serious: Yes (Hospitalization)
  Sender: FDA-Public Use
  Company Number: PHHY2011KR63132

PATIENT

DRUGS (6)
  1. KYMOXIN [Concomitant]
     Dosage: UNK UKN, UNK
  2. TEGRETOL-XR [Suspect]
     Dosage: UNK UKN, UNK
  3. PHENYTOIN SODIUM [Concomitant]
     Dosage: UNK UKN, UNK
  4. CEFAZOLIN [Concomitant]
     Dosage: UNK UKN, UNK
  5. PLAVIX [Concomitant]
     Dosage: UNK UKN, UNK
  6. TYRENOL [Concomitant]
     Dosage: UNK UKN, UNK

REACTIONS (3)
  - PYREXIA [None]
  - RASH [None]
  - INFLUENZA [None]
